FAERS Safety Report 8579403-X (Version None)
Quarter: 2012Q3

REPORT INFORMATION
  Report Type: 
  Country: None (occurrence: None)
  Receive Date: 20120808
  Receipt Date: 20120803
  Transmission Date: 20120928
  Serious: Yes (Hospitalization)
  Sender: FDA-Public Use
  Company Number: VE-ROCHE-1097960

PATIENT
  Age: 47 Year
  Sex: Female
  Weight: 68 kg

DRUGS (2)
  1. CISPLATIN [Concomitant]
     Indication: CERVIX CARCINOMA
     Route: 041
     Dates: start: 20120731
  2. XELODA [Suspect]
     Indication: CERVIX CARCINOMA
     Route: 048
     Dates: start: 20120731

REACTIONS (4)
  - SPEECH DISORDER [None]
  - HEADACHE [None]
  - VERTIGO [None]
  - ASTHENIA [None]
